FAERS Safety Report 17285062 (Version 1)
Quarter: 2020Q1

REPORT INFORMATION
  Report Type: Spontaneous
  Country: US (occurrence: US)
  Receive Date: 20200117
  Receipt Date: 20200117
  Transmission Date: 20200409
  Serious: Yes (Other)
  Sender: FDA-Public Use
  Company Number: US-BAYER-2020-009184

PATIENT
  Age: 25 Year
  Sex: Female

DRUGS (2)
  1. IBUPROFEN. [Concomitant]
     Active Substance: IBUPROFEN
  2. MIRENA [Suspect]
     Active Substance: LEVONORGESTREL
     Indication: CONTRACEPTION
     Dosage: 20 MCG/24HR, CONT
     Route: 015
     Dates: start: 20190312

REACTIONS (4)
  - Genital haemorrhage [Not Recovered/Not Resolved]
  - Abdominal pain lower [None]
  - Amenorrhoea [None]
  - Nausea [None]

NARRATIVE: CASE EVENT DATE: 2019
